FAERS Safety Report 7391906-2 (Version None)
Quarter: 2011Q2

REPORT INFORMATION
  Report Type: 
  Country: None (occurrence: None)
  Receive Date: 20110404
  Receipt Date: 20110330
  Transmission Date: 20111010
  Serious: No
  Sender: FDA-Public Use
  Company Number: US-TEVA-274211USA

PATIENT
  Sex: Female
  Weight: 52.21 kg

DRUGS (3)
  1. PLAN B ONE-STEP [Suspect]
     Indication: POST COITAL CONTRACEPTION
     Route: 048
     Dates: start: 20110328, end: 20110328
  2. ALBUTEROL [Concomitant]
     Indication: ASTHMA
     Dates: start: 20050101
  3. SYMBICORT [Concomitant]
     Indication: ASTHMA
     Dates: start: 20050101

REACTIONS (3)
  - OROPHARYNGEAL PAIN [None]
  - HYPERAESTHESIA [None]
  - LYMPHADENOPATHY [None]
